FAERS Safety Report 8429690-3 (Version None)
Quarter: 2012Q2

REPORT INFORMATION
  Report Type: 
  Country: None (occurrence: None)
  Receive Date: 20120521
  Receipt Date: 20120511
  Transmission Date: 20120825
  Serious: Yes (Other)
  Sender: FDA-Public Use
  Company Number: 2012032284

PATIENT
  Sex: Female

DRUGS (2)
  1. HIZENTRA [Suspect]
     Dosage: 7 G 1X/WEEK, EVERY SATURDAY SUBCUTANEOUS), (7 G LX/2 WEEKS SUBCUTANEOUS)
     Route: 058
  2. ASPIRIN (ACETYLACYLIC ACID) [Concomitant]

REACTIONS (1)
  - TRANSIENT ISCHAEMIC ATTACK [None]
